FAERS Safety Report 5673471-0 (Version None)
Quarter: 2008Q1

REPORT INFORMATION
  Report Type: 
  Country: None (occurrence: None)
  Receive Date: 20080319
  Receipt Date: 20080311
  Transmission Date: 20080703
  Serious: Yes (Hospitalization)
  Sender: FDA-Public Use
  Company Number: IT-ROCHE-501775

PATIENT
  Age: 74 Year
  Sex: Female

DRUGS (1)
  1. ROCEPHIN [Suspect]
     Indication: BRONCHIAL DISORDER
     Dosage: FORM: VIAL.
     Route: 030
     Dates: start: 20070601, end: 20070601

REACTIONS (3)
  - RASH [None]
  - SHOCK [None]
  - TACHYCARDIA [None]
